FAERS Safety Report 10221213 (Version 2)
Quarter: 2014Q2

REPORT INFORMATION
  Report Type: Report from Study
  Country: JP (occurrence: JP)
  Receive Date: 20140606
  Receipt Date: 20140606
  Transmission Date: 20141212
  Serious: Yes (Hospitalization, Other)
  Sender: FDA-Public Use
  Company Number: JP-SA-THYM-1004013

PATIENT
  Age: 75 Year
  Sex: Female
  Weight: 43.7 kg

DRUGS (6)
  1. THYMOGLOBULINE [Suspect]
     Indication: APLASTIC ANAEMIA
     Dosage: 2.5 MG/KG, UNK
     Route: 042
     Dates: start: 20130808, end: 20130812
  2. NEORAL [Concomitant]
     Indication: APLASTIC ANAEMIA
     Dates: start: 20130808
  3. PREDONINE [Concomitant]
     Indication: APLASTIC ANAEMIA
     Dates: start: 20130808, end: 20130902
  4. NEXIUM [Concomitant]
     Indication: PROPHYLAXIS
     Dates: start: 20130808
  5. DIFLUCAN [Concomitant]
     Indication: INFECTION PROPHYLAXIS
     Dates: start: 20130808
  6. BAKTAR [Concomitant]
     Indication: INFECTION PROPHYLAXIS
     Dates: start: 20130808

REACTIONS (2)
  - Hypersensitivity [Recovered/Resolved]
  - Cytomegalovirus infection [Recovered/Resolved]
